FAERS Safety Report 4324456-8 (Version None)
Quarter: 2004Q1

REPORT INFORMATION
  Report Type: 
  Country: None (occurrence: None)
  Receive Date: 20040326
  Receipt Date: 20040216
  Transmission Date: 20041129
  Serious: No
  Sender: FDA-Public Use
  Company Number: US-GLAXOSMITHKLINE-A0498357A

PATIENT
  Age: 64 Year
  Sex: Female

DRUGS (7)
  1. ADVAIR DISKUS 100/50 [Suspect]
     Dosage: 1PUFF TWICE PER DAY
     Route: 055
     Dates: start: 20030428
  2. AMITRIPTYLINE HCL [Concomitant]
  3. TOLMETIN SODIUM [Concomitant]
  4. NEURONTIN [Concomitant]
  5. COMBIVENT [Concomitant]
  6. LISINOPRIL [Concomitant]
  7. ALBUTEROL [Concomitant]

REACTIONS (2)
  - DRUG INEFFECTIVE [None]
  - PHARMACEUTICAL PRODUCT COMPLAINT [None]
